FAERS Safety Report 8360323-0 (Version None)
Quarter: 2012Q2

REPORT INFORMATION
  Report Type: 
  Country: None (occurrence: None)
  Receive Date: 20120515
  Receipt Date: 20120509
  Transmission Date: 20120825
  Serious: No
  Sender: FDA-Public Use
  Company Number: US-TEVA-337351USA

PATIENT
  Sex: Female
  Weight: 90.8 kg

DRUGS (5)
  1. PROAIR HFA [Suspect]
     Indication: DYSPNOEA
     Dosage: PRN
     Dates: start: 20120503
  2. PYRIDOXINE HYDROCHLORIDE [Concomitant]
  3. ERGOCALCIFEROL [Concomitant]
  4. WARFARIN SODIUM [Concomitant]
     Dosage: 6 MILLIGRAM;
  5. CYANOCOBALAMIN [Concomitant]

REACTIONS (3)
  - PARAESTHESIA ORAL [None]
  - DYSGEUSIA [None]
  - GLOSSODYNIA [None]
